FAERS Safety Report 8761030 (Version 1)
Quarter: 2012Q4

REPORT INFORMATION
  Report Type: 
  Country: AT (occurrence: AT)
  Receive Date: 20120830
  Receipt Date: 20120830
  Transmission Date: 20130627
  Serious: Yes (Hospitalization)
  Sender: FDA-Public Use
  Company Number: AT-ROXANE LABORATORIES, INC.-2012-RO-01760RO

PATIENT
  Age: 85 Year
  Sex: Male

DRUGS (2)
  1. LOPERAMIDE [Suspect]
     Indication: DIARRHOEA
     Dosage: 4 mg
  2. DABIGATRAN [Suspect]
     Indication: ANTICOAGULANT THERAPY
     Dosage: 220 mg

REACTIONS (1)
  - Haematuria [Recovered/Resolved]
